FAERS Safety Report 10152424 (Version 2)
Quarter: 2014Q2

REPORT INFORMATION
  Report Type: Spontaneous
  Country: US (occurrence: US)
  Receive Date: 20140505
  Receipt Date: 20140505
  Transmission Date: 20141212
  Serious: No
  Sender: FDA-Public Use
  Company Number: US-TEVA-390657USA

PATIENT
  Sex: Male

DRUGS (2)
  1. CLARAVIS [Suspect]
     Dates: start: 20121205, end: 20130307
  2. SOTRET [Suspect]

REACTIONS (1)
  - Aspartate aminotransferase increased [Unknown]
